FAERS Safety Report 10530552 (Version 2)
Quarter: 2014Q4

REPORT INFORMATION
  Report Type: Spontaneous
  Country: FR (occurrence: None)
  Receive Date: 20141017
  Receipt Date: 20141119
  Transmission Date: 20150528
  Serious: Yes (Life-Threatening, Hospitalization)
  Sender: FDA-Public Use
  Company Number: 2572794

PATIENT
  Age: 51 Year
  Sex: Female

DRUGS (15)
  1. (DIPIPERON) [Concomitant]
  2. (TRIVASTAL /00397201/) [Concomitant]
  3. (TANGANIL /00129601/) [Concomitant]
  4. (RISPERIDONE) [Concomitant]
  5. (KARDEGIC) [Concomitant]
  6. (CERIS) [Concomitant]
  7. (OXYBUTIN) [Concomitant]
  8. (BACLOFEN) [Concomitant]
  9. (DEPAMIDE) [Concomitant]
  10. CARBOPLATIN. [Suspect]
     Active Substance: CARBOPLATIN
     Indication: CHEMOTHERAPY
     Dosage: 162 MG MILLIGRAM(S), (1 WEEK)
     Dates: start: 20140701, end: 20140722
  11. (BROMAZEPAM) [Concomitant]
  12. (LOVENOX) [Concomitant]
  13. (PANTOPRAZOLE) [Concomitant]
  14. PACLITAXEL KABI [Suspect]
     Active Substance: PACLITAXEL
     Indication: CHEMOTHERAPY
     Dosage: 495 MG MILLIGRAM(S) (1 WEEK)
     Dates: start: 20140701, end: 20140722
  15. (MIANSERINE) [Concomitant]

REACTIONS (10)
  - Inflammation [None]
  - Pyelonephritis acute [None]
  - Fall [None]
  - Anaemia [None]
  - Neuropathy peripheral [None]
  - Deep vein thrombosis [None]
  - Paraplegia [None]
  - Acute kidney injury [None]
  - Paresis [None]
  - General physical health deterioration [None]
